FAERS Safety Report 22644704 (Version 1)
Quarter: 2023Q2

REPORT INFORMATION
  Report Type: Spontaneous
  Country: JP (occurrence: JP)
  Receive Date: 20230627
  Receipt Date: 20230627
  Transmission Date: 20230722
  Serious: Yes (Other)
  Sender: FDA-Public Use
  Company Number: JP-BEH-2023160371

PATIENT
  Sex: Female
  Weight: 0.714 kg

DRUGS (13)
  1. PRIVIGEN [Suspect]
     Active Substance: HUMAN IMMUNOGLOBULIN G
     Indication: Product used for unknown indication
     Route: 064
  2. PRIVIGEN [Suspect]
     Active Substance: HUMAN IMMUNOGLOBULIN G
     Dosage: 13 WEEKS OF GESTATION
     Route: 064
  3. PRIVIGEN [Suspect]
     Active Substance: HUMAN IMMUNOGLOBULIN G
     Dosage: 16 WEEKS OF GESTATION
     Route: 064
  4. PRIVIGEN [Suspect]
     Active Substance: HUMAN IMMUNOGLOBULIN G
     Dosage: DELIVERY
     Route: 064
  5. PREDNISOLONE [Suspect]
     Active Substance: PREDNISOLONE
     Dosage: UNK
     Route: 064
  6. ELTROMBOPAG [Suspect]
     Active Substance: ELTROMBOPAG
     Route: 064
  7. METHYLDOPA [Suspect]
     Active Substance: METHYLDOPA
     Dosage: 12 WEEKS
     Route: 064
  8. METHYLDOPA [Suspect]
     Active Substance: METHYLDOPA
     Dosage: 25+4 WEEKS
     Route: 064
  9. NICARDIPINE [Suspect]
     Active Substance: NICARDIPINE
     Route: 064
  10. NICARDIPINE [Suspect]
     Active Substance: NICARDIPINE
     Dosage: 27+3WEEKS OF GESTATION
     Route: 064
  11. MAGNESIUM SULFATE [Suspect]
     Active Substance: MAGNESIUM SULFATE
     Route: 064
  12. BETAMETHASONE [Suspect]
     Active Substance: BETAMETHASONE
     Dosage: UNK
     Route: 064
  13. BETAMETHASONE [Suspect]
     Active Substance: BETAMETHASONE
     Dosage: UNK
     Route: 064

REACTIONS (6)
  - Platelet count decreased [Unknown]
  - Foetal exposure during pregnancy [Unknown]
  - Premature baby [Unknown]
  - Foetal exposure during pregnancy [Unknown]
  - No adverse event [Unknown]
  - Off label use [Unknown]
